FAERS Safety Report 17093047 (Version 6)
Quarter: 2020Q3

REPORT INFORMATION
  Report Type: Report from Study
  Country: US (occurrence: US)
  Receive Date: 20191129
  Receipt Date: 20200709
  Transmission Date: 20201102
  Serious: No
  Sender: FDA-Public Use
  Company Number: NVSC2019US053207

PATIENT
  Age: 55 Year
  Sex: Female

DRUGS (2)
  1. ENTRESTO [Suspect]
     Active Substance: SACUBITRIL\VALSARTAN
     Indication: CARDIAC FAILURE CHRONIC
     Dosage: 1 DF (24/51 MG), BID
     Route: 048
     Dates: start: 20191112
  2. ENTRESTO [Suspect]
     Active Substance: SACUBITRIL\VALSARTAN
     Dosage: 24 MG, BID
     Route: 048
     Dates: start: 20191112

REACTIONS (10)
  - Fatigue [Unknown]
  - Swelling [Recovering/Resolving]
  - Arthritis [Recovering/Resolving]
  - Tenderness [Recovering/Resolving]
  - Sleep disorder [Recovering/Resolving]
  - Peripheral swelling [Recovering/Resolving]
  - Joint swelling [Unknown]
  - Conjunctivitis [Recovering/Resolving]
  - Pollakiuria [Not Recovered/Not Resolved]
  - Salt craving [Unknown]

NARRATIVE: CASE EVENT DATE: 2019
